FAERS Safety Report 25626616 (Version 2)
Quarter: 2025Q3

REPORT INFORMATION
  Report Type: Spontaneous
  Country: EU (occurrence: EU)
  Receive Date: 20250731
  Receipt Date: 20250815
  Transmission Date: 20251021
  Serious: Yes (Hospitalization)
  Sender: AUROBINDO
  Company Number: EU-ARENA-2025-00117

PATIENT
  Age: 5 Month
  Sex: Female

DRUGS (1)
  1. CEFUROXIME [Suspect]
     Active Substance: CEFUROXIME
     Indication: Escherichia infection
     Route: 065

REACTIONS (4)
  - Tachycardia [Recovered/Resolved]
  - Tachypnoea [Recovered/Resolved]
  - Urine output decreased [Recovered/Resolved]
  - Psychomotor hyperactivity [Recovered/Resolved]
